FAERS Safety Report 9722048 (Version 1)
Quarter: 2013Q4

REPORT INFORMATION
  Report Type: Spontaneous
  Country: US (occurrence: US)
  Receive Date: 20131202
  Receipt Date: 20131202
  Transmission Date: 20140711
  Serious: No
  Sender: FDA-Public Use
  Company Number: US-BIOGENIDEC-2013BI085045

PATIENT
  Age: 55 Year
  Sex: Female
  Weight: 47 kg

DRUGS (9)
  1. TECFIDERA [Suspect]
     Indication: PRODUCT USED FOR UNKNOWN INDICATION
     Route: 048
     Dates: start: 20130810, end: 20130816
  2. TECFIDERA [Suspect]
     Indication: PRODUCT USED FOR UNKNOWN INDICATION
     Route: 048
     Dates: start: 20130817
  3. NEURONTIN [Concomitant]
  4. NORCO [Concomitant]
  5. MOTRIN [Concomitant]
  6. TRAMADOL HCL [Concomitant]
  7. PROZAC [Concomitant]
  8. ASPIRIN [Concomitant]
  9. TYLENOL [Concomitant]

REACTIONS (3)
  - Stomatitis [Recovered/Resolved]
  - Arthralgia [Recovered/Resolved]
  - Constipation [Unknown]
